FAERS Safety Report 18454990 (Version 2)
Quarter: 2020Q4

REPORT INFORMATION
  Report Type: Spontaneous
  Country: US (occurrence: US)
  Receive Date: 20201102
  Receipt Date: 20201203
  Transmission Date: 20210114
  Serious: No
  Sender: FDA-Public Use
  Company Number: US-TAKEDA-2020TUS045648

PATIENT
  Sex: Female
  Weight: 190 kg

DRUGS (36)
  1. CUVITRU [Suspect]
     Active Substance: HUMAN IMMUNOGLOBULIN G
     Indication: HYPERGLOBULINAEMIA
     Dosage: 23 GRAM, Q2WEEKS
     Route: 058
     Dates: start: 20181113
  2. DIPHENHYDRAMINE. [Concomitant]
     Active Substance: DIPHENHYDRAMINE
  3. CENTRUM JR [MINERALS NOS;VITAMINS NOS] [Concomitant]
  4. COUMADIN [Concomitant]
     Active Substance: WARFARIN SODIUM
  5. VAGIFEM [Concomitant]
     Active Substance: ESTRADIOL
  6. ALLEGRA [Concomitant]
     Active Substance: FEXOFENADINE HYDROCHLORIDE
  7. CALCIUM [Concomitant]
     Active Substance: CALCIUM
  8. SILVER [Concomitant]
     Active Substance: SILVER
  9. CITRACAL BONE DENSITY BUILDER [Concomitant]
  10. CUVITRU [Suspect]
     Active Substance: HUMAN IMMUNOGLOBULIN G
     Dosage: 23 GRAM, Q2WEEKS
     Route: 058
     Dates: start: 20181114
  11. DOXYCYCLINE HYCLATE. [Concomitant]
     Active Substance: DOXYCYCLINE HYCLATE
  12. AFRIN [OXYMETAZOLINE] [Concomitant]
  13. GABAPENTIN. [Concomitant]
     Active Substance: GABAPENTIN
  14. DULOXETINE. [Concomitant]
     Active Substance: DULOXETINE
  15. DILTIAZEM. [Concomitant]
     Active Substance: DILTIAZEM
  16. ACETAMINOPHEN. [Concomitant]
     Active Substance: ACETAMINOPHEN
  17. LIDOCAINE. [Concomitant]
     Active Substance: LIDOCAINE
  18. EPINEPHRINE. [Concomitant]
     Active Substance: EPINEPHRINE
  19. BUPROPION. [Concomitant]
     Active Substance: BUPROPION
  20. ROPINIROLE. [Concomitant]
     Active Substance: ROPINIROLE
  21. LASIX [Concomitant]
     Active Substance: FUROSEMIDE
  22. VENTOLIN [Concomitant]
     Active Substance: ALBUTEROL SULFATE
  23. ALBUTEROL SULFATE. [Concomitant]
     Active Substance: ALBUTEROL SULFATE
  24. TYLENOL [Concomitant]
     Active Substance: ACETAMINOPHEN
  25. VITAMIN D3 [Concomitant]
     Active Substance: CHOLECALCIFEROL
  26. MONTELUKAST SODIUM. [Concomitant]
     Active Substance: MONTELUKAST SODIUM
  27. CYANOCOBALAMIN. [Concomitant]
     Active Substance: CYANOCOBALAMIN
  28. RANITIDINE. [Concomitant]
     Active Substance: RANITIDINE
  29. HYDROXYCHLOROQUINE SULFATE. [Concomitant]
     Active Substance: HYDROXYCHLOROQUINE SULFATE
  30. NASACORT [Concomitant]
     Active Substance: TRIAMCINOLONE ACETONIDE
  31. TUDORZA PRESSAIR [Concomitant]
     Active Substance: ACLIDINIUM BROMIDE
  32. EPIPEN [Concomitant]
     Active Substance: EPINEPHRINE
  33. OXYCONTIN [Concomitant]
     Active Substance: OXYCODONE HYDROCHLORIDE
  34. AMBIEN [Concomitant]
     Active Substance: ZOLPIDEM TARTRATE
  35. SYMBICORT [Concomitant]
     Active Substance: BUDESONIDE\FORMOTEROL FUMARATE DIHYDRATE
  36. CLONAZEPAM. [Concomitant]
     Active Substance: CLONAZEPAM

REACTIONS (2)
  - Illness [Unknown]
  - Sinusitis [Unknown]
